FAERS Safety Report 10468729 (Version 1)
Quarter: 2014Q3

REPORT INFORMATION
  Report Type: Spontaneous
  Country: US (occurrence: US)
  Receive Date: 20140922
  Receipt Date: 20140922
  Transmission Date: 20150326
  Serious: Yes (Death, Other)
  Sender: FDA-Public Use
  Company Number: PHHY2014US120628

PATIENT
  Age: 78 Year
  Sex: Male

DRUGS (9)
  1. WARFARIN [Interacting]
     Active Substance: WARFARIN
     Dosage: 37.5 MG, (7.5 MG ORALLY ON MONDAYS AND 5 MG ORALLY ON ALL OTHER DAYS)
     Route: 048
  2. VISMODEGIB [Interacting]
     Active Substance: VISMODEGIB
     Indication: BASAL CELL CARCINOMA
     Dosage: 150 MG, QD
     Route: 048
     Dates: start: 201204
  3. WARFARIN [Suspect]
     Active Substance: WARFARIN
     Indication: DEEP VEIN THROMBOSIS
     Dosage: 10 MG, (10 MG ORALLY ON MONDAYS AND 7.5 MG ORALLY ON ALL OTHER DAYS)
     Route: 048
  4. LISINOPRIL. [Concomitant]
     Active Substance: LISINOPRIL
     Dosage: 40 MG, DAILY
  5. PHENYTOIN. [Concomitant]
     Active Substance: PHENYTOIN
     Dosage: 400 MG, DAILY
  6. HYDROCHLOROTHIAZIDE. [Concomitant]
     Active Substance: HYDROCHLOROTHIAZIDE
     Dosage: 25 MG, DAILY
  7. PRAVASTATIN [Concomitant]
     Active Substance: PRAVASTATIN\PRAVASTATIN SODIUM
     Dosage: 40 MG, DAILY
  8. FLUOXETINE [Concomitant]
     Active Substance: FLUOXETINE\FLUOXETINE HYDROCHLORIDE
     Dosage: 20 MG, DAILY
  9. FERROUS SULFATE [Concomitant]
     Active Substance: FERROUS SULFATE\FERROUS SULFATE, DRIED
     Dosage: 325 MG, DAILY

REACTIONS (5)
  - International normalised ratio increased [Unknown]
  - Death [Fatal]
  - Haemoglobin decreased [Unknown]
  - Haematocrit decreased [Unknown]
  - Drug interaction [Unknown]
